FAERS Safety Report 22101291 (Version 1)
Quarter: 2023Q1

REPORT INFORMATION
  Report Type: Spontaneous
  Country: IN (occurrence: IN)
  Receive Date: 20230316
  Receipt Date: 20230316
  Transmission Date: 20230418
  Serious: Yes (Death, Hospitalization, Other)
  Sender: FDA-Public Use
  Company Number: IN-STERISCIENCE B.V.-2023-ST-001014

PATIENT
  Age: 18 Year
  Sex: Female

DRUGS (9)
  1. PIPERACILLIN SODIUM\TAZOBACTAM SODIUM [Suspect]
     Active Substance: PIPERACILLIN SODIUM\TAZOBACTAM SODIUM
     Indication: Thrombosis with thrombocytopenia syndrome
     Dosage: 500 MILLIGRAM, 3 TIMES DAILY, INJECTION
     Route: 065
     Dates: start: 202106
  2. NOREPINEPHRINE [Suspect]
     Active Substance: NOREPINEPHRINE
     Indication: Thrombosis with thrombocytopenia syndrome
     Dosage: UNK
     Route: 065
     Dates: start: 202106
  3. DOPAMINE [Suspect]
     Active Substance: DOPAMINE HYDROCHLORIDE
     Indication: Thrombosis with thrombocytopenia syndrome
     Dosage: INFUSION AT 5 ML/HOUR RATE
     Route: 042
     Dates: start: 202106
  4. HEPARIN [Suspect]
     Active Substance: HEPARIN SODIUM
     Indication: Thrombosis with thrombocytopenia syndrome
     Dosage: 5000 INTERNATIONAL UNIT, Q8H
     Route: 065
     Dates: start: 202106
  5. LEVETIRACETAM [Suspect]
     Active Substance: LEVETIRACETAM
     Indication: Thrombosis with thrombocytopenia syndrome
     Dosage: 500 MILLIGRAM, 0.5 D (INFUSION)
     Route: 042
     Dates: start: 202106
  6. MANNITOL [Suspect]
     Active Substance: MANNITOL
     Indication: Thrombosis with thrombocytopenia syndrome
     Dosage: 100 MILLIGRAM, QD, 24H (INFUSION)
     Route: 042
     Dates: start: 202106
  7. FOLVITE [Suspect]
     Active Substance: FOLIC ACID
     Indication: Thrombosis with thrombocytopenia syndrome
     Dosage: 10 MILLIGRAM, QD
     Route: 065
     Dates: start: 202106
  8. VITAMIN B12 [Suspect]
     Active Substance: CYANOCOBALAMIN
     Indication: Thrombosis with thrombocytopenia syndrome
     Dosage: UNK, QD
     Route: 065
     Dates: start: 202106
  9. ASTRAZENECA COVID-19 VACCINE [Concomitant]
     Active Substance: AZD-1222
     Indication: COVID-19 immunisation
     Dosage: UNK
     Route: 065
     Dates: start: 20210530, end: 20210530

REACTIONS (1)
  - Drug ineffective for unapproved indication [Fatal]

NARRATIVE: CASE EVENT DATE: 20210601
